FAERS Safety Report 6866368-1 (Version None)
Quarter: 2010Q3

REPORT INFORMATION
  Report Type: 
  Country: None (occurrence: None)
  Receive Date: 20100722
  Receipt Date: 20100712
  Transmission Date: 20110219
  Serious: Yes (Hospitalization)
  Sender: FDA-Public Use
  Company Number: PHHY2010IE02234

PATIENT
  Sex: Male

DRUGS (2)
  1. CLOZARIL [Suspect]
     Indication: SCHIZOPHRENIA
     Dosage: 250 MG, UNK
     Route: 048
     Dates: start: 20020107
  2. CLOZARIL [Suspect]
     Dosage: 100 MG, BID

REACTIONS (6)
  - ABDOMINAL INFECTION [None]
  - COLOSTOMY [None]
  - FALL [None]
  - INTESTINAL OBSTRUCTION [None]
  - LAPAROTOMY [None]
  - PELVIC FRACTURE [None]
